FAERS Safety Report 23785038 (Version 1)
Quarter: 2024Q2

REPORT INFORMATION
  Report Type: Spontaneous
  Country: US (occurrence: None)
  Receive Date: 20240425
  Receipt Date: 20240425
  Transmission Date: 20240716
  Serious: No
  Sender: FDA-Public Use
  Company Number: None

PATIENT
  Age: 47 Year
  Sex: Female
  Weight: 124.5 kg

DRUGS (1)
  1. VANCOMYCIN [Suspect]
     Active Substance: VANCOMYCIN
     Indication: Osteomyelitis
     Dosage: FREQUENCY : ONCE;?
     Route: 042
     Dates: start: 20240401, end: 20240422

REACTIONS (3)
  - Pruritus [Unknown]
  - Infusion related reaction [None]
  - Dialysis [None]

NARRATIVE: CASE EVENT DATE: 20240422
